FAERS Safety Report 7307781-8 (Version None)
Quarter: 2011Q1

REPORT INFORMATION
  Report Type: 
  Country: None (occurrence: None)
  Receive Date: 20110223
  Receipt Date: 20110216
  Transmission Date: 20110831
  Serious: Yes (Hospitalization)
  Sender: FDA-Public Use
  Company Number: US-ABBOTT-11P-163-0705981-00

PATIENT
  Age: 70 Year
  Sex: Male
  Weight: 72.64 kg

DRUGS (2)
  1. HUMIRA [Suspect]
     Indication: RHEUMATOID ARTHRITIS
     Dates: start: 20101201
  2. UNKNOWN CARDIAC MEDICATIONS [Concomitant]
     Indication: BLOOD PRESSURE

REACTIONS (1)
  - ARTERIAL OCCLUSIVE DISEASE [None]
